FAERS Safety Report 16989707 (Version 1)
Quarter: 2019Q4

REPORT INFORMATION
  Report Type: Report from Study
  Country: US (occurrence: US)
  Receive Date: 20191104
  Receipt Date: 20191104
  Transmission Date: 20200122
  Serious: Yes (Other)
  Sender: FDA-Public Use
  Company Number: US-BRECKENRIDGE PHARMACEUTICAL, INC.-2076386

PATIENT
  Age: 41 Year
  Sex: Female

DRUGS (4)
  1. DOCUSATE SODIUM. [Concomitant]
     Active Substance: DOCUSATE SODIUM
  2. FERROUS SULFATE. [Concomitant]
     Active Substance: FERROUS SULFATE
  3. ESTRADIOL - NORETHINDRONE ACETATE [Suspect]
     Active Substance: ESTRADIOL\NORETHINDRONE ACETATE
     Indication: HAEMORRHAGE
     Route: 048
     Dates: start: 20161227, end: 20170616
  4. ELAGOLIX [Suspect]
     Active Substance: ELAGOLIX

REACTIONS (2)
  - Ectopic pregnancy [None]
  - Maternal exposure before pregnancy [None]
